FAERS Safety Report 16255675 (Version 1)
Quarter: 2019Q2

REPORT INFORMATION
  Report Type: Spontaneous
  Country: GB (occurrence: GB)
  Receive Date: 20190430
  Receipt Date: 20190430
  Transmission Date: 20190711
  Serious: Yes (Other)
  Sender: FDA-Public Use
  Company Number: GB-DRREDDYS-USA/UKI/19/0109898

PATIENT
  Age: 23 Year
  Sex: Female

DRUGS (4)
  1. IMATINIB MESYLATE TABLETS [Suspect]
     Active Substance: IMATINIB MESYLATE
     Indication: CHRONIC MYELOID LEUKAEMIA
  2. TACROLIMUS. [Suspect]
     Active Substance: TACROLIMUS
     Indication: IMMUNOSUPPRESSION
  3. METRONIDAZOLE. [Suspect]
     Active Substance: METRONIDAZOLE
     Indication: POSTOPERATIVE WOUND INFECTION
     Dosage: 14 DAYS
     Route: 042
  4. FLUCLOXACILLIN [Suspect]
     Active Substance: FLUCLOXACILLIN
     Indication: POSTOPERATIVE WOUND INFECTION
     Dosage: 14 DAYS
     Route: 048

REACTIONS (4)
  - Philadelphia chromosome positive [Unknown]
  - Acute hepatic failure [Unknown]
  - Polyhydramnios [Unknown]
  - Postoperative wound infection [Unknown]
